FAERS Safety Report 5471900-9 (Version None)
Quarter: 2007Q3

REPORT INFORMATION
  Report Type: 
  Country: None (occurrence: None)
  Receive Date: 20070928
  Receipt Date: 20070427
  Transmission Date: 20080115
  Serious: No
  Sender: FDA-Public Use
  Company Number: US-BRISTOL-MYERS SQUIBB COMPANY-13763859

PATIENT
  Age: 80 Year
  Sex: Female
  Weight: 108 kg

DRUGS (1)
  1. DEFINITY [Suspect]
     Indication: ECHOCARDIOGRAM
     Route: 042
     Dates: start: 20070427, end: 20070427

REACTIONS (2)
  - BACK PAIN [None]
  - HEADACHE [None]
